FAERS Safety Report 11873730 (Version 2)
Quarter: 2016Q1

REPORT INFORMATION
  Report Type: Spontaneous
  Country: US (occurrence: US)
  Receive Date: 20151229
  Receipt Date: 20160111
  Transmission Date: 20160526
  Serious: Yes (Other)
  Sender: FDA-Public Use
  Company Number: US-JNJFOC-20151218962

PATIENT
  Age: 52 Year
  Sex: Female
  Weight: 47.63 kg

DRUGS (2)
  1. IMODIUM [Suspect]
     Active Substance: LOPERAMIDE HYDROCHLORIDE
     Indication: FOOD INTOLERANCE
     Route: 048
  2. IMODIUM [Suspect]
     Active Substance: LOPERAMIDE HYDROCHLORIDE
     Indication: PREMENSTRUAL SYNDROME
     Route: 048

REACTIONS (9)
  - Foreign body [Unknown]
  - Product use issue [Unknown]
  - Off label use [Unknown]
  - Retching [Unknown]
  - Dysphagia [Unknown]
  - Vomiting [Unknown]
  - Product formulation issue [Unknown]
  - Wrong technique in product usage process [Unknown]
  - Choking [Unknown]
